FAERS Safety Report 17430390 (Version 1)
Quarter: 2020Q1

REPORT INFORMATION
  Report Type: Spontaneous
  Country: US (occurrence: US)
  Receive Date: 20200216
  Receipt Date: 20200216
  Transmission Date: 20200409
  Serious: No
  Sender: FDA-Public Use
  Company Number: None

PATIENT
  Age: 7 Year
  Sex: Female
  Weight: 22.05 kg

DRUGS (2)
  1. AMOXICILLIN 400 MG/5ML SUSP 75ML [Suspect]
     Active Substance: AMOXICILLIN
     Indication: EAR INFECTION
     Dates: start: 20200205, end: 20200214
  2. MULTIVITAMIN (OLLY BRAND) [Concomitant]

REACTIONS (1)
  - Rash erythematous [None]

NARRATIVE: CASE EVENT DATE: 20200213
